FAERS Safety Report 17252278 (Version 5)
Quarter: 2025Q4

REPORT INFORMATION
  Report Type: Report from Study
  Country: JP (occurrence: JP)
  Receive Date: 20200109
  Receipt Date: 20251229
  Transmission Date: 20260118
  Serious: Yes (Hospitalization, Other)
  Sender: ABBVIE
  Company Number: JP-TAKEDA-2020TJP000128

PATIENT
  Age: 53 Year
  Sex: Male
  Weight: 50 kg

DRUGS (14)
  1. LEUPROLIDE ACETATE [Suspect]
     Active Substance: LEUPROLIDE ACETATE
     Indication: Bulbospinal muscular atrophy congenital
     Dosage: 11.25 MILLIGRAM, Q3MONTHS
     Route: 058
     Dates: start: 20180622
  2. CARVEDILOL [Concomitant]
     Active Substance: CARVEDILOL
     Indication: Cardiac failure chronic
     Dosage: 20 MILLIGRAM
     Route: 065
     Dates: end: 20241218
  3. Mucodyne ds [Concomitant]
     Indication: Product used for unknown indication
     Dosage: 1500 MILLIGRAM
     Route: 065
     Dates: start: 20250303
  4. ASPIRIN [Concomitant]
     Active Substance: ASPIRIN
     Indication: Angina pectoris
     Dosage: 100 MILLIGRAM
     Route: 065
     Dates: end: 20230511
  5. LOSARTAN [Concomitant]
     Active Substance: LOSARTAN
     Indication: Hypertension
     Dosage: 50 MILLIGRAM
     Route: 065
     Dates: end: 20220602
  6. CARBOCYSTEINE [Concomitant]
     Active Substance: CARBOCYSTEINE
     Indication: Bronchitis
     Dosage: 1500 MILLIGRAM
     Route: 065
     Dates: end: 20250302
  7. AMBROXOL HYDROCHLORIDE [Concomitant]
     Active Substance: AMBROXOL HYDROCHLORIDE
     Indication: Bronchitis
     Dosage: 45 MILLIGRAM
     Route: 065
     Dates: end: 20250302
  8. AMPICILLIN SODIUM\SULBACTAM SODIUM [Concomitant]
     Active Substance: AMPICILLIN SODIUM\SULBACTAM SODIUM
     Indication: Pneumonia bacterial
     Dosage: 1.5 GRAM, QID
     Route: 065
     Dates: start: 20190525, end: 20190602
  9. CEFAZOLIN SODIUM [Concomitant]
     Active Substance: CEFAZOLIN SODIUM
     Indication: Pneumonia bacterial
     Dosage: 1 GRAM, BID
     Route: 065
     Dates: start: 20190528, end: 20190528
  10. WARFARIN [Concomitant]
     Active Substance: WARFARIN
     Indication: Prophylaxis
     Dosage: 1.5 MILLIGRAM
     Route: 065
  11. WARFARIN [Concomitant]
     Active Substance: WARFARIN
     Indication: Prophylaxis
     Dosage: 2 MILLIGRAM
     Route: 065
  12. LOSARTAN POTASSIUM [Concomitant]
     Active Substance: LOSARTAN POTASSIUM
     Indication: Product used for unknown indication
     Dosage: 25 MILLIGRAM
     Route: 065
  13. CARVEDILOL [Concomitant]
     Active Substance: CARVEDILOL
     Indication: Product used for unknown indication
     Dosage: 2.5 MILLIGRAM
     Route: 065
     Dates: start: 20241219
  14. AMBROXOL HYDROCHLORIDE [Concomitant]
     Active Substance: AMBROXOL HYDROCHLORIDE
     Indication: Product used for unknown indication
     Dosage: 45 MILLIGRAM
     Route: 065
     Dates: start: 20250303

REACTIONS (5)
  - Pneumonia [Recovered/Resolved]
  - Fall [Recovering/Resolving]
  - Femur fracture [Recovering/Resolving]
  - Dyspnoea [Not Recovered/Not Resolved]
  - Hypophagia [Not Recovered/Not Resolved]

NARRATIVE: CASE EVENT DATE: 20190523
